FAERS Safety Report 5605872-0 (Version None)
Quarter: 2008Q1

REPORT INFORMATION
  Report Type: 
  Country: None (occurrence: None)
  Receive Date: 20080129
  Receipt Date: 20080121
  Transmission Date: 20080703
  Serious: Yes (Other)
  Sender: FDA-Public Use
  Company Number: PHFR2008GB00662

PATIENT
  Sex: Male

DRUGS (1)
  1. ACLASTA [Suspect]
     Route: 065

REACTIONS (1)
  - OSTEONECROSIS [None]
